FAERS Safety Report 14077974 (Version 1)
Quarter: 2017Q4

REPORT INFORMATION
  Report Type: Spontaneous
  Country: US (occurrence: US)
  Receive Date: 20171012
  Receipt Date: 20171012
  Transmission Date: 20180321
  Serious: No
  Sender: FDA-Public Use
  Company Number: US-MYLANLABS-2017M1014839

PATIENT
  Sex: Female
  Weight: 62.59 kg

DRUGS (1)
  1. FENTANYL TRANSDERMAL SYSTEM [Suspect]
     Active Substance: FENTANYL
     Indication: PAIN
     Dosage: 12.5 ?G, QH CHANGE Q72H
     Route: 062
     Dates: start: 2016

REACTIONS (1)
  - Feeling hot [Not Recovered/Not Resolved]
